FAERS Safety Report 19040970 (Version 1)
Quarter: 2021Q1

REPORT INFORMATION
  Report Type: Spontaneous
  Country: DE (occurrence: DE)
  Receive Date: 20210322
  Receipt Date: 20210322
  Transmission Date: 20210420
  Serious: Yes (Hospitalization, Other)
  Sender: FDA-Public Use
  Company Number: DE-TEVA-2021-DE-1892085

PATIENT
  Age: 79 Year
  Sex: Female

DRUGS (9)
  1. ACETYLSALICYLSAEURE [Suspect]
     Active Substance: ASPIRIN
     Indication: JOINT INJURY
     Dosage: REQUIREMENT
  2. ACETYLSALICYLSAEURE [Suspect]
     Active Substance: ASPIRIN
     Indication: ARTHRALGIA
  3. LATANOPROST. [Concomitant]
     Active Substance: LATANOPROST
     Dosage: 1 DOSAGE FORMS DAILY; 0?0?1?0
     Route: 047
  4. MAGNESIUM [Concomitant]
     Active Substance: MAGNESIUM
     Dosage: REQUIREMENT
  5. METFORMIN [Concomitant]
     Active Substance: METFORMIN HYDROCHLORIDE
     Dosage: 2000 MILLIGRAM DAILY; 1?0?1?0
  6. IBUPROFEN. [Suspect]
     Active Substance: IBUPROFEN
     Indication: ARTHRALGIA
     Dosage: REQUIREMENT
  7. JANUVIA [Concomitant]
     Active Substance: SITAGLIPTIN PHOSPHATE
     Dosage: 100 MILLIGRAM DAILY;  0?1?0?0
  8. SIMVASTATIN. [Concomitant]
     Active Substance: SIMVASTATIN
     Dosage: 2 DOSAGE FORMS DAILY; 20 MG, 0?0?2?0
  9. IBUPROFEN. [Suspect]
     Active Substance: IBUPROFEN
     Indication: JOINT INJURY

REACTIONS (6)
  - Anaemia [Unknown]
  - Nausea [Unknown]
  - Circulatory collapse [Unknown]
  - Haematochezia [Unknown]
  - Abdominal pain [Unknown]
  - General physical health deterioration [Unknown]
